FAERS Safety Report 9881736 (Version 3)
Quarter: 2014Q1

REPORT INFORMATION
  Report Type: Spontaneous
  Country: BR (occurrence: BR)
  Receive Date: 20140207
  Receipt Date: 20140226
  Transmission Date: 20141002
  Serious: No
  Sender: FDA-Public Use
  Company Number: BR-009507513-2011SP047309

PATIENT
  Age: 17 Year
  Sex: Female
  Weight: 73 kg

DRUGS (3)
  1. MERCILON CONTI [Suspect]
     Indication: CONTRACEPTION
     Dosage: 1 TABLET, QD
     Route: 048
     Dates: start: 2007
  2. BEBETINA [Concomitant]
     Indication: HEADACHE
     Dosage: UNK UNK, UNKNOWN
     Route: 048
     Dates: start: 2009
  3. ACETAMINOPHEN [Concomitant]
     Indication: PAIN
     Dosage: UNK, UNKNOWN
     Route: 065

REACTIONS (21)
  - Rhinoplasty [Recovered/Resolved]
  - Urinary tract infection [Recovered/Resolved]
  - Myalgia [Recovered/Resolved]
  - Haematochezia [Unknown]
  - Urinary tract infection [Not Recovered/Not Resolved]
  - Constipation [Recovered/Resolved]
  - Diarrhoea [Recovered/Resolved]
  - Abdominal pain upper [Recovered/Resolved]
  - Diarrhoea [Recovered/Resolved]
  - Abnormal withdrawal bleeding [Not Recovered/Not Resolved]
  - Menstrual disorder [Unknown]
  - Abdominal pain [Recovered/Resolved]
  - Migraine [Recovered/Resolved]
  - Metrorrhagia [Recovered/Resolved]
  - Metrorrhagia [Unknown]
  - Inappropriate schedule of drug administration [Unknown]
  - Drug administration error [Unknown]
  - Drug administration error [Unknown]
  - Drug administration error [Unknown]
  - Drug administration error [Unknown]
  - Nasal septum deviation [Recovered/Resolved]
